FAERS Safety Report 8400801 (Version 2)
Quarter: 2013Q1

REPORT INFORMATION
  Report Type: Spontaneous
  Country: US (occurrence: US)
  Receive Date: 20120210
  Receipt Date: 20130219
  Transmission Date: 20140127
  Serious: No
  Sender: FDA-Public Use
  Company Number: US-BRISTOL-MYERS SQUIBB COMPANY-16221731

PATIENT
  Age: 29 Year
  Sex: Female

DRUGS (2)
  1. ORENCIA [Suspect]
     Indication: RHEUMATOID ARTHRITIS
     Dosage: LAST INF:SEP2011(TWO MONTHS AGO)
     Route: 042
     Dates: start: 20110829, end: 20110912
  2. DICLOFENAC [Suspect]

REACTIONS (2)
  - Sinusitis [Unknown]
  - Dermatitis [Unknown]
